FAERS Safety Report 11129243 (Version 3)
Quarter: 2015Q3

REPORT INFORMATION
  Report Type: Spontaneous
  Country: US (occurrence: US)
  Receive Date: 20150521
  Receipt Date: 20150707
  Transmission Date: 20151125
  Serious: Yes (Other)
  Sender: FDA-Public Use
  Company Number: US-INCYTE CORPORATION-2015IN002119

PATIENT
  Age: 80 Year
  Sex: Female
  Weight: 45.81 kg

DRUGS (6)
  1. JAKAFI [Suspect]
     Active Substance: RUXOLITINIB
     Dosage: 5 MG, BID
     Route: 048
     Dates: end: 20150619
  2. JAKAFI [Suspect]
     Active Substance: RUXOLITINIB
     Indication: MYELOFIBROSIS
     Dosage: NOT SPECIFIED
     Route: 048
     Dates: start: 20140606
  3. LEVOTHYROXINE. [Concomitant]
     Active Substance: LEVOTHYROXINE
  4. JAKAFI [Suspect]
     Active Substance: RUXOLITINIB
     Dosage: 5 MG, QD
     Route: 048
     Dates: start: 20140627, end: 20150512
  5. PROCRIT [Concomitant]
     Active Substance: ERYTHROPOIETIN
  6. JAKAFI [Suspect]
     Active Substance: RUXOLITINIB
     Dosage: NOT SPECIFIED
     Route: 048
     Dates: start: 201505

REACTIONS (11)
  - Blood bilirubin increased [Unknown]
  - Ecchymosis [Unknown]
  - Renal failure [Unknown]
  - Blood potassium increased [Unknown]
  - Anaemia [Unknown]
  - Contusion [Unknown]
  - Thrombocytopenia [Unknown]
  - Peripheral swelling [Recovering/Resolving]
  - Dyspnoea [Unknown]
  - Cough [Unknown]
  - Fatigue [Unknown]

NARRATIVE: CASE EVENT DATE: 20150511
